FAERS Safety Report 12788123 (Version 2)
Quarter: 2016Q4

REPORT INFORMATION
  Report Type: Spontaneous
  Country: GR (occurrence: GR)
  Receive Date: 20160928
  Receipt Date: 20161028
  Transmission Date: 20170207
  Serious: Yes (Death)
  Sender: FDA-Public Use
  Company Number: GR-INCYTE CORPORATION-2016IN005875

PATIENT
  Age: 77 Year
  Sex: Male

DRUGS (1)
  1. JAKAVI [Suspect]
     Active Substance: RUXOLITINIB
     Indication: MYELOFIBROSIS
     Dosage: 15 MG, UNK
     Route: 065

REACTIONS (2)
  - Cardiac disorder [Fatal]
  - Cardiac failure [Fatal]
